FAERS Safety Report 7617791-9 (Version None)
Quarter: 2011Q3

REPORT INFORMATION
  Report Type: 
  Country: None (occurrence: None)
  Receive Date: 20110718
  Receipt Date: 20110712
  Transmission Date: 20111222
  Serious: Yes (Other)
  Sender: FDA-Public Use
  Company Number: JP-EISAI INC-E2090-01688-SPO-JP

PATIENT
  Age: 52 Year
  Sex: Male

DRUGS (4)
  1. ZONISAMIDE [Suspect]
     Indication: EPILEPSY
     Dosage: 400 MG DAILY
     Route: 048
     Dates: start: 20020901
  2. DEPAKENE [Suspect]
     Indication: EPILEPSY
     Dosage: 1200 MG DAILY
     Route: 048
     Dates: start: 20020901
  3. ALEVIATIN [Suspect]
     Indication: EPILEPSY
     Dosage: 200 MG DAILY
     Route: 048
     Dates: start: 20030901
  4. CLONAZEPAM [Concomitant]
     Route: 048
     Dates: start: 20100701

REACTIONS (1)
  - STEVENS-JOHNSON SYNDROME [None]
